FAERS Safety Report 8997261 (Version 2)
Quarter: 2013Q1

REPORT INFORMATION
  Report Type: Spontaneous
  Country: US (occurrence: US)
  Receive Date: 20130104
  Receipt Date: 20130125
  Transmission Date: 20140127
  Serious: No
  Sender: FDA-Public Use
  Company Number: US-PFIZER INC-2013001431

PATIENT
  Age: 4 Year
  Sex: Male
  Weight: 13.2 kg

DRUGS (5)
  1. GENOTROPIN [Suspect]
     Indication: GROWTH RETARDATION
     Dosage: 0.7 MG, 1X/DAY, SIX TIMES A WEEK
     Route: 058
     Dates: start: 2012, end: 20121229
  2. LEVOXYL [Concomitant]
     Indication: SEPTO-OPTIC DYSPLASIA
     Dosage: UNK
  3. HYDROCORTISONE [Concomitant]
     Indication: SEPTO-OPTIC DYSPLASIA
     Dosage: UNK
  4. LEVOTHYROXINE [Concomitant]
     Indication: BLOOD THYROID STIMULATING HORMONE DECREASED
     Dosage: 25 UG, 1X/DAY
     Dates: start: 20080201
  5. CORTEF [Concomitant]
     Indication: BLOOD CORTICOTROPHIN DECREASED
     Dosage: 2.5 MG, 2X/DAY
     Dates: start: 20080201

REACTIONS (4)
  - Injection site rash [Recovering/Resolving]
  - Injection site vesicles [Recovering/Resolving]
  - Injection site erythema [Recovering/Resolving]
  - Rash [Recovered/Resolved]
